FAERS Safety Report 25495356 (Version 1)
Quarter: 2025Q2

REPORT INFORMATION
  Report Type: Spontaneous
  Country: US (occurrence: US)
  Receive Date: 20250630
  Receipt Date: 20250630
  Transmission Date: 20250717
  Serious: No
  Sender: BIOGEN
  Company Number: US-BIOGEN-2025BI01315533

PATIENT
  Sex: Male

DRUGS (7)
  1. TECFIDERA [Suspect]
     Active Substance: DIMETHYL FUMARATE
     Indication: Multiple sclerosis
     Route: 050
  2. BACLOFEN [Concomitant]
     Active Substance: BACLOFEN
     Route: 050
  3. COPAXONE [Concomitant]
     Active Substance: GLATIRAMER ACETATE
     Route: 050
  4. LISINOPRIL [Concomitant]
     Active Substance: LISINOPRIL
     Route: 050
  5. OMEPRAZOLE [Concomitant]
     Active Substance: OMEPRAZOLE
     Route: 050
  6. LOSARTAN POTASSIUM [Concomitant]
     Active Substance: LOSARTAN POTASSIUM
     Route: 050
  7. ATORVASTATIN CALCIUM [Concomitant]
     Active Substance: ATORVASTATIN CALCIUM
     Route: 050

REACTIONS (7)
  - Fatigue [Unknown]
  - Hypoaesthesia [Unknown]
  - Muscle spasms [Unknown]
  - Dizziness [Unknown]
  - Headache [Unknown]
  - Back pain [Unknown]
  - Amnesia [Unknown]
